FAERS Safety Report 5057958-X (Version None)
Quarter: 2006Q3

REPORT INFORMATION
  Report Type: 
  Country: None (occurrence: None)
  Receive Date: 20060721
  Receipt Date: 20060418
  Transmission Date: 20061208
  Serious: No
  Sender: FDA-Public Use
  Company Number: US-GLAXOSMITHKLINE-A0602197A

PATIENT
  Age: 66 Year
  Sex: Male

DRUGS (4)
  1. AVANDIA [Suspect]
     Dosage: 4MG PER DAY
     Route: 048
  2. PREVACID [Concomitant]
  3. AVODART [Concomitant]
  4. LOPID [Concomitant]

REACTIONS (1)
  - CHROMATURIA [None]
